FAERS Safety Report 8847682 (Version 1)
Quarter: 2012Q4

REPORT INFORMATION
  Report Type: 
  Country: US (occurrence: US)
  Receive Date: 20121018
  Receipt Date: 20121018
  Transmission Date: 20130627
  Serious: No
  Sender: FDA-Public Use
  Company Number: US-009507513-1210USA007823

PATIENT
  Sex: Female

DRUGS (3)
  1. VICTRELIS [Suspect]
     Indication: HEPATITIS C
     Dosage: UNK
     Route: 048
     Dates: start: 20121005
  2. REBETOL [Suspect]
     Indication: HEPATITIS C
     Route: 048
  3. PEGASYS [Suspect]
     Indication: HEPATITIS C

REACTIONS (8)
  - Influenza like illness [Unknown]
  - Chills [Unknown]
  - White blood cell count decreased [Unknown]
  - Cough [Unknown]
  - Visual impairment [Unknown]
  - Confusional state [Unknown]
  - Dizziness [Unknown]
  - Gait disturbance [Unknown]
